FAERS Safety Report 13490026 (Version 2)
Quarter: 2017Q2

REPORT INFORMATION
  Report Type: Report from Study
  Country: US (occurrence: US)
  Receive Date: 20170426
  Receipt Date: 20170508
  Transmission Date: 20170830
  Serious: Yes (Hospitalization)
  Sender: FDA-Public Use
  Company Number: US-ASTRAZENECA-2015SF22729

PATIENT
  Sex: Female
  Weight: 103 kg

DRUGS (4)
  1. BYETTA [Suspect]
     Active Substance: EXENATIDE
     Indication: TYPE 2 DIABETES MELLITUS
     Route: 058
  2. BRILINTA [Suspect]
     Active Substance: TICAGRELOR
     Route: 048
  3. HUMALOG R [Concomitant]
     Indication: TYPE 2 DIABETES MELLITUS
     Route: 058
  4. HUMALOG N [Concomitant]
     Active Substance: INSULIN LISPRO
     Indication: TYPE 2 DIABETES MELLITUS
     Route: 058

REACTIONS (3)
  - Chylothorax [Unknown]
  - Dyspnoea [Unknown]
  - Drug dose omission [Unknown]
